FAERS Safety Report 13226224 (Version 1)
Quarter: 2017Q1

REPORT INFORMATION
  Report Type: Spontaneous
  Country: US (occurrence: US)
  Receive Date: 20170213
  Receipt Date: 20170213
  Transmission Date: 20170428
  Serious: No
  Sender: FDA-Public Use
  Company Number: US-PFIZER INC-2017055104

PATIENT

DRUGS (1)
  1. SUTENT [Suspect]
     Active Substance: SUNITINIB MALATE
     Dosage: 50 MG, CYCLIC, (4 WEEKS ON/2 WEEKS OFF)

REACTIONS (3)
  - Neoplasm progression [Unknown]
  - Pelvic pain [Unknown]
  - Pain in extremity [Unknown]
